FAERS Safety Report 9653963 (Version 2)
Quarter: 2014Q4

REPORT INFORMATION
  Report Type: Spontaneous
  Country: US (occurrence: None)
  Receive Date: 20131028
  Receipt Date: 20141007
  Transmission Date: 20150529
  Serious: Yes (Death)
  Sender: FDA-Public Use
  Company Number: 1713747-2013-99966

PATIENT
  Age: 65 Year
  Sex: Male

DRUGS (5)
  1. LIBERTY PD CYCLER LIBERTY CYCLER SET [Concomitant]
  2. DEXTROSE. [Suspect]
     Active Substance: DEXTROSE
     Indication: DIALYSIS
     Dosage: PD CATHETER
     Dates: start: 20130930
  3. SINGLE PATIENT CONNECTOR [Concomitant]
  4. CHEMOTHERAPY [Concomitant]
     Active Substance: UNSPECIFIED INGREDIENT
  5. DEXTROSE. [Suspect]
     Active Substance: DEXTROSE
     Indication: CHRONIC KIDNEY DISEASE
     Dosage: PD CATHETER
     Dates: start: 20130930

REACTIONS (2)
  - Device occlusion [None]
  - Medical device complication [None]

NARRATIVE: CASE EVENT DATE: 20131001
